FAERS Safety Report 6430370-4 (Version None)
Quarter: 2009Q4

REPORT INFORMATION
  Report Type: 
  Country: None (occurrence: None)
  Receive Date: 20091106
  Receipt Date: 20091006
  Transmission Date: 20100525
  Serious: No
  Sender: FDA-Public Use
  Company Number: US-BAYER-200915415BCC

PATIENT
  Age: 67 Year
  Sex: Female
  Weight: 49 kg

DRUGS (2)
  1. ALEVE (CAPLET) [Suspect]
     Indication: ARTHRALGIA
     Dosage: TOTAL DAILY DOSE: 440 MG  UNIT DOSE: 220 MG
     Route: 048
     Dates: start: 20091005
  2. MOBIC [Concomitant]
     Route: 065

REACTIONS (1)
  - INITIAL INSOMNIA [None]
